FAERS Safety Report 18527535 (Version 1)
Quarter: 2020Q4

REPORT INFORMATION
  Report Type: Spontaneous
  Country: US (occurrence: US)
  Receive Date: 20201120
  Receipt Date: 20201120
  Transmission Date: 20210114
  Serious: Yes (Hospitalization)
  Sender: FDA-Public Use
  Company Number: None

PATIENT
  Age: 61 Year
  Sex: Male
  Weight: 68 kg

DRUGS (1)
  1. ABIRATERONE ACETATE (748121) [Suspect]
     Active Substance: ABIRATERONE ACETATE
     Dates: end: 20201112

REACTIONS (3)
  - Investigation noncompliance [None]
  - Arthralgia [None]
  - Metastases to pelvis [None]

NARRATIVE: CASE EVENT DATE: 20201117
